FAERS Safety Report 10271197 (Version 1)
Quarter: 2014Q3

REPORT INFORMATION
  Report Type: Spontaneous
  Country: US (occurrence: US)
  Receive Date: 20140701
  Receipt Date: 20140701
  Transmission Date: 20150326
  Serious: Yes (Hospitalization, Disabling, Other)
  Sender: FDA-Public Use
  Company Number: US-TEVA-490876USA

PATIENT
  Sex: Male

DRUGS (2)
  1. BUSPIRONE [Suspect]
     Active Substance: BUSPIRONE HYDROCHLORIDE
     Indication: ANXIETY
     Dosage: 20 MILLIGRAM DAILY;
     Dates: start: 20120911
  2. CELEXA [Concomitant]
     Active Substance: CITALOPRAM HYDROBROMIDE
     Indication: DEPRESSION

REACTIONS (10)
  - Social avoidant behaviour [Unknown]
  - Disability [Unknown]
  - Asthenia [Unknown]
  - Chest pain [Unknown]
  - Activities of daily living impaired [Unknown]
  - Phobia of driving [Unknown]
  - Abnormal behaviour [Unknown]
  - Impaired work ability [Unknown]
  - Abasia [Recovering/Resolving]
  - Dyskinesia [Unknown]
